FAERS Safety Report 5910770-9 (Version None)
Quarter: 2008Q4

REPORT INFORMATION
  Report Type: 
  Country: None (occurrence: None)
  Receive Date: 20081007
  Receipt Date: 20080425
  Transmission Date: 20090506
  Serious: No
  Sender: FDA-Public Use
  Company Number: US-ASTRAZENECA-2008UW08488

PATIENT
  Age: 69 Year
  Sex: Female
  Weight: 85.7 kg

DRUGS (5)
  1. ARIMIDEX [Suspect]
     Indication: BREAST CANCER FEMALE
     Route: 048
     Dates: start: 20080101
  2. LIPITOR [Concomitant]
  3. PAROXETINE HCL [Concomitant]
  4. COD-LIVER OIL [Concomitant]
  5. ANTIDEPRESSANT [Concomitant]

REACTIONS (4)
  - AMNESIA [None]
  - FATIGUE [None]
  - HOT FLUSH [None]
  - HYPOAESTHESIA [None]
